FAERS Safety Report 5712676-7 (Version None)
Quarter: 2008Q2

REPORT INFORMATION
  Report Type: 
  Country: None (occurrence: None)
  Receive Date: 20080418
  Receipt Date: 20080403
  Transmission Date: 20081010
  Serious: Yes (Death)
  Sender: FDA-Public Use
  Company Number: CHPA2006US09748

PATIENT
  Age: 15 Year
  Sex: Female
  Weight: 67.1 kg

DRUGS (1)
  1. NODOZ               (CAFFEINE) UNKNOWN [Suspect]
     Dosage: ORAL
     Route: 048
     Dates: start: 20060510, end: 20060510

REACTIONS (23)
  - BRAIN OEDEMA [None]
  - CARDIAC DISORDER [None]
  - CARDIO-RESPIRATORY ARREST [None]
  - COMPLETED SUICIDE [None]
  - CONJUNCTIVAL HYPERAEMIA [None]
  - CONTUSION [None]
  - DRUG TOXICITY [None]
  - EXCORIATION [None]
  - EXPIRED DRUG ADMINISTERED [None]
  - HEPATIC CONGESTION [None]
  - INJURY [None]
  - INTENTIONAL OVERDOSE [None]
  - MOANING [None]
  - MUCOSAL HYPERAEMIA [None]
  - MYDRIASIS [None]
  - PULMONARY ALVEOLAR HAEMORRHAGE [None]
  - PULMONARY CONGESTION [None]
  - PULMONARY OEDEMA [None]
  - RENAL DISORDER [None]
  - SCAR [None]
  - SKIN LACERATION [None]
  - UNRESPONSIVE TO STIMULI [None]
  - VOMITING [None]
